FAERS Safety Report 5526087-0 (Version None)
Quarter: 2007Q4

REPORT INFORMATION
  Report Type: 
  Country: None (occurrence: None)
  Receive Date: 20071126
  Receipt Date: 20071119
  Transmission Date: 20080405
  Serious: Yes (Other)
  Sender: FDA-Public Use
  Company Number: US-MERCK-0709USA03378

PATIENT
  Age: 50 Year
  Sex: Male

DRUGS (5)
  1. FOSAMAX [Suspect]
     Indication: OSTEOPOROSIS
     Route: 048
     Dates: start: 20070101, end: 20070101
  2. PHENOBARBITAL [Concomitant]
     Route: 065
     Dates: start: 19670101
  3. TRILEPTAL [Concomitant]
     Route: 065
     Dates: start: 19670101
  4. DILANTIN [Concomitant]
     Route: 065
     Dates: start: 19670101
  5. [THERAPY UNSPECIFIED] [Concomitant]
     Route: 065

REACTIONS (1)
  - EPILEPSY [None]
